FAERS Safety Report 7424498-X (Version None)
Quarter: 2011Q2

REPORT INFORMATION
  Report Type: 
  Country: None (occurrence: None)
  Receive Date: 20110419
  Receipt Date: 20110411
  Transmission Date: 20111010
  Serious: Yes (Other)
  Sender: FDA-Public Use
  Company Number: US-TEVA-275826USA

PATIENT
  Age: 52 Year
  Sex: Male

DRUGS (3)
  1. METHADONE [Interacting]
     Dosage: 30 MG/DAY
     Dates: start: 20080925
  2. QUETIAPINE [Concomitant]
     Dates: start: 20080922
  3. FLUOXETINE CAPSULE 10MG,20MG [Suspect]
     Dates: start: 20080703

REACTIONS (2)
  - DRUG INTERACTION [None]
  - ELECTROCARDIOGRAM QT PROLONGED [None]
